FAERS Safety Report 7010896-5 (Version None)
Quarter: 2010Q3

REPORT INFORMATION
  Report Type: 
  Country: None (occurrence: None)
  Receive Date: 20100923
  Receipt Date: 20100923
  Transmission Date: 20110219
  Serious: Yes (Other)
  Sender: FDA-Public Use
  Company Number: None

PATIENT
  Age: 63 Year
  Sex: Female
  Weight: 73.9363 kg

DRUGS (1)
  1. NEOSPORIN [Suspect]
     Indication: INFECTION
     Dosage: OINTMENT 3-4 TIMES A DAY
     Dates: start: 20100501, end: 20100601

REACTIONS (3)
  - DOCUMENTED HYPERSENSITIVITY TO ADMINISTERED DRUG [None]
  - NO THERAPEUTIC RESPONSE [None]
  - PRODUCT LABEL ISSUE [None]
